FAERS Safety Report 17006283 (Version 2)
Quarter: 2019Q4

REPORT INFORMATION
  Report Type: Spontaneous
  Country: US (occurrence: US)
  Receive Date: 20191107
  Receipt Date: 20191111
  Transmission Date: 20200122
  Serious: Yes (Hospitalization, Other)
  Sender: FDA-Public Use
  Company Number: US-ALKERMES INC.-ALK-2019-005807

PATIENT
  Age: 29 Year
  Sex: Female

DRUGS (3)
  1. VIVITROL [Suspect]
     Active Substance: NALTREXONE
     Dosage: 380 MG, QMO
     Route: 030
     Dates: start: 20190813, end: 20190813
  2. VIVITROL [Suspect]
     Active Substance: NALTREXONE
     Indication: ALCOHOLISM
     Dosage: 380 MG, QMO
     Route: 030
     Dates: start: 20190910, end: 20190910
  3. VIVITROL [Suspect]
     Active Substance: NALTREXONE
     Dosage: 380 MG, QMO
     Route: 030
     Dates: start: 20190716, end: 20190716

REACTIONS (4)
  - Blood bilirubin increased [Unknown]
  - Hepatic failure [Not Recovered/Not Resolved]
  - Alcoholism [Not Recovered/Not Resolved]
  - Product dose omission [Unknown]

NARRATIVE: CASE EVENT DATE: 201911
